FAERS Safety Report 8136006-9 (Version None)
Quarter: 2012Q1

REPORT INFORMATION
  Report Type: 
  Country: None (occurrence: None)
  Receive Date: 20120209
  Receipt Date: 20120201
  Transmission Date: 20120608
  Serious: Yes (Death)
  Sender: FDA-Public Use
  Company Number: DSA_54881_2012

PATIENT
  Sex: Male

DRUGS (1)
  1. XENAZINE [Suspect]
     Indication: HUNTINGTON'S DISEASE
     Dosage: DF ORAL
     Route: 048

REACTIONS (3)
  - GENERAL PHYSICAL CONDITION ABNORMAL [None]
  - COMPLETED SUICIDE [None]
  - MENTAL STATUS CHANGES [None]
